FAERS Safety Report 9250681 (Version 1)
Quarter: 2013Q1

REPORT INFORMATION
  Report Type: Spontaneous
  Country: US (occurrence: None)
  Receive Date: 20130305
  Receipt Date: 20130305
  Transmission Date: 20140127
  Serious: Yes (Other)
  Sender: FDA-Public Use
  Company Number: 163-21880-12100762

PATIENT
  Age: 75 Year
  Sex: Female

DRUGS (19)
  1. REVLIMID [Suspect]
     Indication: PLASMA CELL MYELOMA
     Dosage: 21 IN 21 D
     Route: 048
     Dates: start: 20101217
  2. CENTRUM (CENTRUM) [Concomitant]
  3. VITAMIN D (ERGOCALCIFEROL) [Concomitant]
  4. LOVAZA (OMEGA-3 MARINE TRIGLYCERIDES) (CAPSULES) [Concomitant]
  5. SPIRONOLACTONE (SPIRONOLACTONE) [Concomitant]
  6. ALLOPURINOL [Concomitant]
  7. LASIX (FUROSEMIDE) [Concomitant]
  8. SYNTHROID (LEVOTHYROXINE SODIUM) [Concomitant]
  9. ASPIRIN EC (ACETYLSALICYLIC ACID) [Concomitant]
  10. GLIPIZIDE (GLIPIZIDE) [Concomitant]
  11. ZETIA (EZETIMIBE) [Concomitant]
  12. GABAPENTIN (GABAPENTIN) [Concomitant]
  13. POTASSIUM (POTASSIUM) [Concomitant]
  14. ONDANSETRON HCL (ONDANSETRON HYDROCHLORIDE) [Concomitant]
  15. PROCHLORPERAZINE (PROCHLORPERAZINE) [Concomitant]
  16. TYLENOL (PARACETAMOL) [Concomitant]
  17. LOVENOX (HEPARIN-FRACTION, SODIUM SALT) [Concomitant]
  18. CALCIUM (CALCIUM) [Concomitant]
  19. HUMULIN (NOVOLIN 20/80) [Concomitant]

REACTIONS (2)
  - Cough [None]
  - Nausea [None]
